FAERS Safety Report 5821658-6 (Version None)
Quarter: 2008Q3

REPORT INFORMATION
  Report Type: 
  Country: None (occurrence: None)
  Receive Date: 20080714
  Receipt Date: 20071029
  Transmission Date: 20090109
  Serious: Yes (Hospitalization)
  Sender: FDA-Public Use
  Company Number: 528306

PATIENT
  Age: 69 Year
  Sex: Female

DRUGS (1)
  1. BONIVA [Suspect]
     Indication: BONE DENSITY DECREASED
     Dosage: ORAL
     Route: 048

REACTIONS (1)
  - HYPERSENSITIVITY [None]
